FAERS Safety Report 21042457 (Version 4)
Quarter: 2023Q1

REPORT INFORMATION
  Report Type: Spontaneous
  Country: US (occurrence: US)
  Receive Date: 20220705
  Receipt Date: 20230309
  Transmission Date: 20230417
  Serious: Yes (Death, Other)
  Sender: FDA-Public Use
  Company Number: US-CELLTRION INC.-2022US003716

PATIENT

DRUGS (6)
  1. INFLECTRA [Suspect]
     Active Substance: INFLIXIMAB-DYYB
     Indication: Rheumatoid arthritis
     Dosage: 300 MG WEEK 0,2,6 THEN EVERY 8 WEEKS
     Route: 042
     Dates: start: 20220317
  2. INFLECTRA [Suspect]
     Active Substance: INFLIXIMAB-DYYB
     Indication: Rheumatoid lung
     Dosage: 300 MG WEEK 0,2,6 THEN EVERY 8 WEEKS
     Route: 042
     Dates: start: 20220317
  3. INFLECTRA [Suspect]
     Active Substance: INFLIXIMAB-DYYB
     Indication: Rheumatoid arthritis
     Dosage: 300 MG WEEK 0,2,6 THEN EVERY 8 WEEKS
     Route: 042
     Dates: start: 20220317
  4. INFLECTRA [Suspect]
     Active Substance: INFLIXIMAB-DYYB
     Indication: Rheumatoid arthritis-associated interstitial lung disease
  5. INFLECTRA [Suspect]
     Active Substance: INFLIXIMAB-DYYB
     Indication: Drug therapy
  6. INFLECTRA [Suspect]
     Active Substance: INFLIXIMAB-DYYB
     Indication: Rheumatoid arthritis

REACTIONS (8)
  - Death [Fatal]
  - Rectal haemorrhage [Unknown]
  - Rheumatoid arthritis-associated interstitial lung disease [Unknown]
  - Bladder disorder [Unknown]
  - Haemorrhoids [Unknown]
  - Cystitis [Unknown]
  - Off label use [Unknown]
  - Off label use [Unknown]

NARRATIVE: CASE EVENT DATE: 20221104
